FAERS Safety Report 18043919 (Version 1)
Quarter: 2020Q3

REPORT INFORMATION
  Report Type: Spontaneous
  Country: US (occurrence: US)
  Receive Date: 20200720
  Receipt Date: 20200720
  Transmission Date: 20201103
  Serious: No
  Sender: FDA-Public Use
  Company Number: US-SA-2020SA179663

PATIENT

DRUGS (2)
  1. DUPIXENT [Suspect]
     Active Substance: DUPILUMAB
     Indication: DERMATITIS ATOPIC
     Dosage: 600 MG, 1X
     Dates: start: 20200708
  2. DUPIXENT [Suspect]
     Active Substance: DUPILUMAB
     Indication: ASPARTATE AMINOTRANSFERASE

REACTIONS (2)
  - Product use in unapproved indication [Unknown]
  - Product preparation error [Unknown]
